FAERS Safety Report 5962900-0 (Version None)
Quarter: 2008Q4

REPORT INFORMATION
  Report Type: 
  Country: None (occurrence: None)
  Receive Date: 20081119
  Receipt Date: 20081119
  Transmission Date: 20090506
  Serious: Yes (Hospitalization)
  Sender: FDA-Public Use
  Company Number: None

PATIENT
  Sex: Male
  Weight: 71.4 kg

DRUGS (1)
  1. MEMANTINE HCL [Suspect]
     Dosage: 20 MG

REACTIONS (6)
  - DEHYDRATION [None]
  - DIZZINESS [None]
  - DYSPHAGIA [None]
  - DYSPNOEA [None]
  - HAEMOPTYSIS [None]
  - MUSCULOSKELETAL CHEST PAIN [None]
